FAERS Safety Report 8514389-5 (Version None)
Quarter: 2012Q3

REPORT INFORMATION
  Report Type: 
  Country: None (occurrence: None)
  Receive Date: 20120717
  Receipt Date: 20120709
  Transmission Date: 20120928
  Serious: Yes (Hospitalization)
  Sender: FDA-Public Use
  Company Number: US-BAYER-2012-042957

PATIENT
  Age: 26 Year
  Sex: Female
  Weight: 81.633 kg

DRUGS (10)
  1. OXYCODONE HCL AND ACETAMINOPHEN [Concomitant]
     Dosage: 5/325 MG
     Dates: start: 20070724
  2. SOLODYN [Concomitant]
     Dosage: 135 MG, UNK
     Dates: start: 20070909
  3. HYDROXYZINE [Concomitant]
     Dosage: 25 MG, UNK
     Dates: start: 20070925
  4. FRAGMIN [Concomitant]
     Indication: THROMBOSIS PROPHYLAXIS
     Dosage: UNK
     Dates: start: 20100915
  5. CLARINEX [Concomitant]
     Dosage: 5 MG, UNK
     Dates: start: 20070925
  6. MELOXICAM [Concomitant]
     Dosage: 15 MG, UNK
     Dates: start: 20070727
  7. YASMIN [Suspect]
     Dosage: UNK
     Dates: start: 20060316, end: 20071007
  8. NSAID'S [Concomitant]
     Dosage: UNK
     Dates: start: 20000101, end: 20070101
  9. DIETARY SUPPLEMENT [Concomitant]
     Indication: WEIGHT DECREASED
     Dosage: UNK
     Dates: start: 20071010
  10. MINOCYCLINE HCL [Concomitant]
     Dosage: 1 PILL [TIMES] DAILY
     Dates: start: 20070101

REACTIONS (7)
  - INJURY [None]
  - CARDIAC DISORDER [None]
  - CIRCULATORY COLLAPSE [None]
  - PAIN [None]
  - CHEST PAIN [None]
  - DEEP VEIN THROMBOSIS [None]
  - PULMONARY EMBOLISM [None]
